FAERS Safety Report 16632904 (Version 1)
Quarter: 2019Q3

REPORT INFORMATION
  Report Type: Spontaneous
  Country: US (occurrence: US)
  Receive Date: 20190725
  Receipt Date: 20190725
  Transmission Date: 20191004
  Serious: No
  Sender: FDA-Public Use
  Company Number: US-PFIZER INC-2019317449

PATIENT
  Age: 65 Year
  Sex: Female
  Weight: 136.5 kg

DRUGS (1)
  1. DILANTIN [Suspect]
     Active Substance: PHENYTOIN
     Indication: EPILEPSY
     Dosage: 500 MG, DAILY (100 MG FIVE A DAY)

REACTIONS (1)
  - Memory impairment [Not Recovered/Not Resolved]
